FAERS Safety Report 10136981 (Version 2)
Quarter: 2014Q2

REPORT INFORMATION
  Report Type: Spontaneous
  Country: US (occurrence: US)
  Receive Date: 20140429
  Receipt Date: 20140624
  Transmission Date: 20141212
  Serious: Yes (Hospitalization, Other)
  Sender: FDA-Public Use
  Company Number: US-SA-2014SA055597

PATIENT
  Sex: Female

DRUGS (4)
  1. DESMOPRESSIN ACETATE [Suspect]
     Indication: FACTOR VIII DEFICIENCY
     Dosage: FORM-NASAL SPRAY?FREQUENCY: 2 SPRAY
     Route: 045
     Dates: start: 2008, end: 2009
  2. DESMOPRESSIN ACETATE [Suspect]
     Indication: FACTOR VIII DEFICIENCY
     Dosage: FORM-NASAL SPRAY?FREQUENCY: 2 SPRAY
     Route: 045
     Dates: start: 201012
  3. DESMOPRESSIN ACETATE [Suspect]
     Indication: FACTOR VIII DEFICIENCY
     Dosage: FORM-NASAL SPRAY?FREQUENCY: 2 SPRAY
     Route: 045
     Dates: start: 20140311
  4. ADVATE [Concomitant]
     Dosage: FACTOR VIII, RECOMBINANT

REACTIONS (4)
  - Generalised tonic-clonic seizure [Recovered/Resolved]
  - Generalised tonic-clonic seizure [Recovered/Resolved]
  - Migraine [Recovered/Resolved]
  - Crying [Recovered/Resolved]
